FAERS Safety Report 9321336 (Version 3)
Quarter: 2013Q2

REPORT INFORMATION
  Report Type: Spontaneous
  Country: US (occurrence: US)
  Receive Date: 20130531
  Receipt Date: 20130607
  Transmission Date: 20140414
  Serious: Yes (Other)
  Sender: FDA-Public Use
  Company Number: US-PFIZER INC-2013164620

PATIENT
  Age: 77 Year
  Sex: Female

DRUGS (5)
  1. AMIODARONE HCL [Suspect]
     Dosage: 800 MG, UNK
  2. AMIODARONE HCL [Suspect]
     Dosage: 400 MG, UNK
  3. AMIODARONE HCL [Suspect]
     Dosage: 200 MG, UNK
  4. AMIODARONE HCL [Suspect]
     Dosage: 100 MG, UNK
     Dates: end: 2013
  5. LOSARTAN [Concomitant]
     Dosage: HALF OF A 12.5 MG TABLET, UNK

REACTIONS (6)
  - Optic nerve disorder [Unknown]
  - Corneal deposits [Unknown]
  - Chills [Unknown]
  - Asthenia [Unknown]
  - Feeling cold [Unknown]
  - Renal function test abnormal [Not Recovered/Not Resolved]
